FAERS Safety Report 5168852-8 (Version None)
Quarter: 2006Q4

REPORT INFORMATION
  Report Type: 
  Country: None (occurrence: None)
  Receive Date: 20061211
  Receipt Date: 20061129
  Transmission Date: 20070319
  Serious: Yes (Hospitalization)
  Sender: FDA-Public Use
  Company Number: FR-JNJFOC-20061201116

PATIENT
  Age: 36 Year
  Sex: Female

DRUGS (6)
  1. INFLIXIMAB [Suspect]
     Indication: SPONDYLOARTHROPATHY
     Route: 042
  2. INFLIXIMAB [Suspect]
     Indication: CROHN'S DISEASE
     Route: 042
  3. CORTICOTHERAPY [Concomitant]
     Indication: SPONDYLOARTHROPATHY
  4. CORTICOTHERAPY [Concomitant]
     Indication: CROHN'S DISEASE
  5. AZATHIOPRINE [Concomitant]
     Indication: SPONDYLOARTHROPATHY
  6. AZATHIOPRINE [Concomitant]
     Indication: CROHN'S DISEASE

REACTIONS (1)
  - ACUTE MYELOID LEUKAEMIA [None]
